FAERS Safety Report 9369241 (Version 1)
Quarter: 2013Q2

REPORT INFORMATION
  Report Type: Spontaneous
  Country: US (occurrence: None)
  Receive Date: 20130625
  Receipt Date: 20130625
  Transmission Date: 20140414
  Serious: Yes (Death)
  Sender: FDA-Public Use
  Company Number: None

PATIENT
  Sex: Male

DRUGS (1)
  1. XELODA 500MG HOFFMANN LA ROCHE INC [Suspect]
     Indication: RENAL CELL CARCINOMA
     Route: 048
     Dates: start: 20130413

REACTIONS (1)
  - Death [None]
